FAERS Safety Report 8573873-9 (Version None)
Quarter: 2012Q3

REPORT INFORMATION
  Report Type: 
  Country: None (occurrence: None)
  Receive Date: 20120806
  Receipt Date: 20120221
  Transmission Date: 20120928
  Serious: No
  Sender: FDA-Public Use
  Company Number: US-GLAXOSMITHKLINE-A0966731A

PATIENT
  Age: 72 Year
  Sex: Male

DRUGS (4)
  1. SPIRIVA [Concomitant]
  2. FLUTICASONE PROPIONATE [Suspect]
     Indication: ASTHMA
     Dosage: 2PUFF TWICE PER DAY
     Route: 055
     Dates: start: 20090501
  3. INHALER [Concomitant]
  4. ALLERGY SHOTS [Concomitant]

REACTIONS (7)
  - PRURITUS [None]
  - CANDIDIASIS [None]
  - DYSPNOEA [None]
  - BLADDER DISORDER [None]
  - LACRIMATION INCREASED [None]
  - ECZEMA [None]
  - PROSTATIC DISORDER [None]
